FAERS Safety Report 10036057 (Version 2)
Quarter: 2014Q3

REPORT INFORMATION
  Report Type: Other
  Country: IT (occurrence: IT)
  Receive Date: 20140325
  Receipt Date: 20140905
  Transmission Date: 20150326
  Serious: Yes (Other)
  Sender: FDA-Public Use
  Company Number: IT-BRISTOL-MYERS SQUIBB COMPANY-20554465

PATIENT
  Age: 52 Year
  Sex: Female

DRUGS (4)
  1. IRINOTECAN [Suspect]
     Active Substance: IRINOTECAN
     Indication: METASTATIC GASTRIC CANCER
     Dosage: ON DAY 1
     Route: 042
  2. 5-FLUOROURACIL [Suspect]
     Active Substance: FLUOROURACIL
     Indication: METASTATIC GASTRIC CANCER
     Dosage: 600MG/M2
     Route: 040
  3. CETUXIMAB [Suspect]
     Active Substance: CETUXIMAB
     Indication: METASTATIC GASTRIC CANCER
     Dosage: WEEKLY DOSES OF 250 MG/M2
     Route: 042
  4. FOLINIC ACID [Suspect]
     Active Substance: LEUCOVORIN
     Indication: METASTATIC GASTRIC CANCER
     Route: 042

REACTIONS (2)
  - Rash [Unknown]
  - Hepatitis C [Unknown]

NARRATIVE: CASE EVENT DATE: 200511
